FAERS Safety Report 7512818-7 (Version None)
Quarter: 2011Q2

REPORT INFORMATION
  Report Type: 
  Country: None (occurrence: None)
  Receive Date: 20110531
  Receipt Date: 20110516
  Transmission Date: 20111010
  Serious: Yes (Hospitalization)
  Sender: FDA-Public Use
  Company Number: PL-GENENTECH-319158

PATIENT
  Sex: Female
  Weight: 64 kg

DRUGS (15)
  1. VINCRISTINE [Suspect]
     Indication: CHRONIC LYMPHOCYTIC LEUKAEMIA
     Dosage: 2 MG, Q3W
     Route: 042
     Dates: start: 20101228
  2. CYCLOPHOSPHAMIDE [Suspect]
     Indication: CHRONIC LYMPHOCYTIC LEUKAEMIA
     Dosage: 1200 MG, Q3W
     Route: 042
     Dates: start: 20101228
  3. RITUXIMAB [Suspect]
     Indication: CHRONIC LYMPHOCYTIC LEUKAEMIA
     Dosage: 600 MG, Q3W
     Route: 042
     Dates: start: 20101228
  4. APO-AMLO [Concomitant]
     Indication: HYPERTENSION
     Dosage: 5 MG, QAM
     Route: 048
     Dates: start: 20101228
  5. ALLUPOL [Concomitant]
     Indication: HYPERURICAEMIA
     Dosage: 100 MG, TID
     Route: 048
     Dates: start: 20070904
  6. HEVIRAN [Concomitant]
     Indication: PRODUCT USED FOR UNKNOWN INDICATION
     Dosage: 400 MG, TID
     Dates: start: 20101228
  7. SETRONON [Concomitant]
     Indication: NAUSEA
     Dosage: 8 MG, UNK
     Route: 048
  8. KALDYUM [Concomitant]
     Indication: HYPOKALAEMIA
     Dosage: 600 MG, BID
     Route: 048
     Dates: start: 20101213
  9. METOCLOPRAMIDE [Concomitant]
     Indication: ABDOMINAL DISCOMFORT
     Dosage: 10 MG, QAM
     Route: 048
     Dates: start: 20101228
  10. ENCORTON [Concomitant]
     Indication: CHRONIC LYMPHOCYTIC LEUKAEMIA
     Dosage: 20 MG, UNK
     Route: 048
     Dates: start: 20101228, end: 20110407
  11. ENARENAL [Concomitant]
     Indication: HYPERTENSION
     Dosage: 20 MG, BID
     Route: 048
     Dates: start: 20070814
  12. FORADIL [Concomitant]
     Indication: ASTHMA
     Dosage: .012 MG, BID
     Route: 055
     Dates: start: 20070904
  13. PANTOPRAZOLUM [Concomitant]
     Indication: ABDOMINAL DISCOMFORT
     Dosage: 40 MG, BID
     Route: 048
     Dates: start: 20101228
  14. NEULASTA [Concomitant]
     Indication: PROPHYLAXIS
     Dosage: UNK
     Route: 058
     Dates: start: 20110206
  15. INDAPAMIDE [Concomitant]
     Indication: HYPERTENSION
     Dosage: 1.5 MG, QAM
     Route: 048
     Dates: start: 20070906

REACTIONS (1)
  - PAROTID GLAND INFLAMMATION [None]
